FAERS Safety Report 5404625-6 (Version None)
Quarter: 2007Q3

REPORT INFORMATION
  Report Type: 
  Country: None (occurrence: None)
  Receive Date: 20070713
  Receipt Date: 20070510
  Transmission Date: 20080115
  Serious: Yes (Hospitalization, Other)
  Sender: FDA-Public Use
  Company Number: US-JNJFOC-20060405233

PATIENT
  Age: 34 Year
  Sex: Female
  Weight: 87.8 kg

DRUGS (3)
  1. ORTHO EVRA [Suspect]
     Indication: CONTRACEPTION
     Dosage: 1 DOSE(S), 1 IN 4 WEEK, TRANSDERMAL
     Route: 062
     Dates: start: 20030401, end: 20030501
  2. CLONAZEPAM [Concomitant]
  3. NEXIUM [Concomitant]

REACTIONS (2)
  - PALPITATIONS [None]
  - PULMONARY EMBOLISM [None]
